FAERS Safety Report 7983465-8 (Version None)
Quarter: 2011Q4

REPORT INFORMATION
  Report Type: 
  Country: None (occurrence: None)
  Receive Date: 20111215
  Receipt Date: 20111215
  Transmission Date: 20120403
  Serious: Yes (Death, Life-Threatening, Other)
  Sender: FDA-Public Use
  Company Number: US-ROXANE LABORATORIES, INC.-2011-RO-01814RO

PATIENT
  Sex: Male

DRUGS (1)
  1. METHADONE HCL [Suspect]
     Route: 048
     Dates: start: 20111210, end: 20111210

REACTIONS (4)
  - INTENTIONAL DRUG MISUSE [None]
  - DRUG DIVERSION [None]
  - DEATH [None]
  - OVERDOSE [None]
